FAERS Safety Report 9887547 (Version 1)
Quarter: 2014Q1

REPORT INFORMATION
  Report Type: Spontaneous
  Country: US (occurrence: US)
  Receive Date: 20140211
  Receipt Date: 20140211
  Transmission Date: 20141002
  Serious: Yes (Hospitalization)
  Sender: FDA-Public Use
  Company Number: US-ASTRAZENECA-2014SE07659

PATIENT
  Age: 79 Year
  Sex: Male
  Weight: 84.8 kg

DRUGS (11)
  1. TOPROL-XL [Suspect]
     Indication: ANGINA PECTORIS
     Route: 048
  2. TOPROL-XL [Suspect]
     Indication: BLOOD PRESSURE ABNORMAL
     Route: 048
  3. TOPROL-XL [Suspect]
     Indication: ANGINA PECTORIS
     Dosage: GENERIC METOPROLOL SUCCINATE, USED APPROXIMATELY 15 TABLETS
     Route: 048
     Dates: start: 20130926
  4. TOPROL-XL [Suspect]
     Indication: BLOOD PRESSURE ABNORMAL
     Dosage: GENERIC METOPROLOL SUCCINATE, USED APPROXIMATELY 15 TABLETS
     Route: 048
     Dates: start: 20130926
  5. TOPROL-XL [Suspect]
     Indication: ANGINA PECTORIS
     Route: 048
  6. TOPROL-XL [Suspect]
     Indication: BLOOD PRESSURE ABNORMAL
     Route: 048
  7. ARMOUR THYROID [Concomitant]
     Indication: THYROID DISORDER
     Route: 048
  8. PLAVIX [Concomitant]
     Indication: ANTICOAGULANT THERAPY
     Dosage: DAILY
     Route: 048
     Dates: start: 201311
  9. ASPIRIN [Concomitant]
     Indication: ANTICOAGULANT THERAPY
     Route: 048
     Dates: start: 201311
  10. XANAX [Concomitant]
     Indication: ANXIETY
     Dosage: PRN
     Route: 048
  11. SYNTHROID [Concomitant]

REACTIONS (10)
  - Myocardial infarction [Unknown]
  - Malaise [Recovered/Resolved]
  - Gastric dilatation [Recovered/Resolved]
  - Angina pectoris [Recovered/Resolved]
  - Autoimmune thyroiditis [Unknown]
  - Headache [Recovered/Resolved]
  - Anxiety [Recovered/Resolved]
  - Dyspnoea [Recovered/Resolved]
  - Tachycardia [Recovered/Resolved]
  - Off label use [Unknown]
